FAERS Safety Report 25167077 (Version 1)
Quarter: 2025Q2

REPORT INFORMATION
  Report Type: Spontaneous
  Country: US (occurrence: None)
  Receive Date: 20250404
  Receipt Date: 20250404
  Transmission Date: 20250717
  Serious: Yes (Other)
  Sender: FDA-CTU
  Company Number: None

PATIENT
  Age: 54 Year
  Sex: Female

DRUGS (2)
  1. COSENTYX [Suspect]
     Active Substance: SECUKINUMAB
     Indication: Eczema
     Dosage: 300 MG/ML EVERY 4 WEEKS SUBCUTANEOUS?
     Route: 058
     Dates: start: 20250107, end: 20250403
  2. COSENTYX [Suspect]
     Active Substance: SECUKINUMAB
     Indication: Psoriasis

REACTIONS (1)
  - Pneumonia [None]

NARRATIVE: CASE EVENT DATE: 20250403
